FAERS Safety Report 9093047 (Version 1)
Quarter: 2013Q1

REPORT INFORMATION
  Report Type: Report from Study
  Country: US (occurrence: US)
  Receive Date: 20130218
  Receipt Date: 20130218
  Transmission Date: 20140127
  Serious: No
  Sender: FDA-Public Use
  Company Number: US-ABBOTT-12P-163-0980141-00

PATIENT
  Sex: Female

DRUGS (1)
  1. SIMCOR 500/20 [Suspect]
     Indication: PRODUCT USED FOR UNKNOWN INDICATION
     Dosage: 500/20MG 1 AT BEDTIME
     Route: 048

REACTIONS (2)
  - Flushing [Unknown]
  - Product quality issue [Unknown]
